FAERS Safety Report 4592512-5 (Version None)
Quarter: 2005Q1

REPORT INFORMATION
  Report Type: 
  Country: None (occurrence: None)
  Receive Date: 20050222
  Receipt Date: 20050207
  Transmission Date: 20050727
  Serious: Yes (Life-Threatening, Other)
  Sender: FDA-Public Use
  Company Number: 207733

PATIENT
  Age: 28 Year
  Sex: Female

DRUGS (5)
  1. MABTHERA (RITUXIMAB) CONC FOR SOLUTION FOR INFUSION [Suspect]
     Indication: JUVENILE ARTHRITIS
     Dosage: 375 MG, INTRAVENOUS
     Route: 042
     Dates: start: 20040419, end: 20040514
  2. INSUMAN RAPIDE (INSULIN HUMAN) [Concomitant]
  3. LANTUS [Concomitant]
  4. SANDIMMUNE [Concomitant]
  5. L-THYROXIN [Concomitant]

REACTIONS (2)
  - ANAPHYLACTIC REACTION [None]
  - EXANTHEM [None]
